FAERS Safety Report 9770937 (Version 4)
Quarter: 2014Q1

REPORT INFORMATION
  Report Type: Spontaneous
  Country: GB (occurrence: GB)
  Receive Date: 20131218
  Receipt Date: 20140117
  Transmission Date: 20141002
  Serious: Yes (Hospitalization, Congenital Anomaly, Other)
  Sender: FDA-Public Use
  Company Number: GB-PFIZER INC-2013346259

PATIENT
  Age: 1 Year
  Sex: Male
  Weight: 3.4 kg

DRUGS (16)
  1. OLANZAPINE [Suspect]
     Dosage: 5 MG, 1X/DAY
     Route: 064
     Dates: start: 20120112, end: 20120114
  2. HALOPERIDOL [Suspect]
     Dosage: 5 MG, 2X/DAY
     Route: 064
     Dates: start: 20111229, end: 20120104
  3. HALOPERIDOL [Suspect]
     Dosage: 5 MG, 3X/DAY
     Route: 064
     Dates: start: 20120105, end: 20120109
  4. CHLORPROMAZINE [Suspect]
     Indication: SCHIZOPHRENIA, PARANOID TYPE
     Dosage: 25 MG, 3X/DAY
     Route: 064
     Dates: start: 20111215, end: 20121219
  5. CHLORPROMAZINE [Suspect]
     Dosage: 200 MG, 3X/DAY
     Route: 064
     Dates: start: 20120109, end: 20120114
  6. RISPERDAL [Suspect]
     Indication: SCHIZOPHRENIA, PARANOID TYPE
     Dosage: 3 MG, IN THE MORNING AND 4 MG AT NIGH
     Route: 064
     Dates: start: 20120221, end: 20120307
  7. RISPERDAL [Suspect]
     Dosage: 3 MG, 2X/DAY
     Route: 064
     Dates: start: 20120308, end: 20120609
  8. RISPERDAL [Suspect]
     Dosage: 6 MG, IN THE MORNING
     Route: 063
     Dates: start: 20120609, end: 20120821
  9. ZOPICLONE [Suspect]
     Indication: INSOMNIA
     Dosage: 15 MG, AT NIGHT
     Route: 064
     Dates: start: 20120210, end: 20120718
  10. ZOPICLONE [Suspect]
     Indication: SLEEP DISORDER
  11. PROMETHAZINE [Suspect]
     Indication: PRODUCT USED FOR UNKNOWN INDICATION
     Dosage: 25 MG, ONCE AS NEEDED
     Route: 064
     Dates: start: 20111216
  12. SENNA [Suspect]
     Indication: PRODUCT USED FOR UNKNOWN INDICATION
     Dosage: 15MG, UNK
     Route: 064
     Dates: start: 20120116
  13. CYCLIZINE [Suspect]
     Indication: PRODUCT USED FOR UNKNOWN INDICATION
     Dosage: 50MG, UNK
     Route: 064
     Dates: start: 20111228, end: 20120131
  14. ENTONOX [Suspect]
     Indication: ANALGESIC THERAPY
     Dosage: UNK, ONCE AS NECESSARY
     Route: 064
     Dates: start: 20120718, end: 20120718
  15. SYNTOMETRINE [Suspect]
     Indication: PRODUCT USED FOR UNKNOWN INDICATION
     Dosage: UNK
     Route: 064
     Dates: start: 20120718, end: 20120718
  16. ALCOHOL [Suspect]
     Indication: PRODUCT USED FOR UNKNOWN INDICATION
     Dosage: UNK
     Route: 062

REACTIONS (5)
  - Maternal exposure during pregnancy [Recovered/Resolved]
  - Dextrocardia [Unknown]
  - Foetal alcohol syndrome [Unknown]
  - Visual impairment [Unknown]
  - Drug withdrawal syndrome [Unknown]
